FAERS Safety Report 6433101-7 (Version None)
Quarter: 2009Q4

REPORT INFORMATION
  Report Type: 
  Country: None (occurrence: None)
  Receive Date: 20091109
  Receipt Date: 20091104
  Transmission Date: 20100525
  Serious: Yes (Other)
  Sender: FDA-Public Use
  Company Number: US-ALLERGAN-0915380US

PATIENT
  Age: 37 Year
  Sex: Female

DRUGS (12)
  1. GATIFLOXACIN [Suspect]
     Indication: PREOPERATIVE CARE
     Dosage: EVERY 5 MINUTES FOR A TOTAL OF 3 DOSES 1 HOUR
     Route: 047
  2. GATIFLOXACIN [Suspect]
     Indication: VISION BLURRED
     Dosage: UNK
     Route: 047
  3. GATIFLOXACIN [Suspect]
     Indication: OCULAR HYPERAEMIA
  4. GATIFLOXACIN [Suspect]
     Indication: PHOTOPHOBIA
  5. GATIFLOXACIN [Suspect]
  6. PREDNISOLONE ACETATE [Suspect]
     Indication: VISION BLURRED
     Dosage: Q1HR THEN TAPER
     Route: 047
  7. PREDNISOLONE ACETATE [Suspect]
     Indication: OCULAR HYPERAEMIA
  8. PREDNISOLONE ACETATE [Suspect]
     Indication: PHOTOPHOBIA
  9. PREDNISOLONE ACETATE [Suspect]
  10. POVIDONE IODINE [Concomitant]
     Indication: PREOPERATIVE CARE
     Dosage: UNK
  11. POVIDONE IODINE [Concomitant]
     Indication: POSTOPERATIVE CARE
  12. TOBRAMYCIN-DEXAMETHASONE [Concomitant]
     Dosage: UNK
     Route: 047

REACTIONS (3)
  - ENDOPHTHALMITIS [None]
  - MYOPIA [None]
  - VITREOUS OPACITIES [None]
